FAERS Safety Report 9356680 (Version 1)
Quarter: 2013Q2

REPORT INFORMATION
  Report Type: Spontaneous
  Country: DE (occurrence: DE)
  Receive Date: 20130619
  Receipt Date: 20130619
  Transmission Date: 20140414
  Serious: Yes (Other)
  Sender: FDA-Public Use
  Company Number: DE-MYLANLABS-2013S1012921

PATIENT
  Age: 32 Year
  Sex: Female
  Weight: 65 kg

DRUGS (3)
  1. FLUOXETIN [Suspect]
     Indication: DEPRESSION
     Dosage: 40 [MG/D ]/ PAUSE SSW 7-22
     Route: 048
  2. AMOXICILLIN [Concomitant]
     Indication: PNEUMONIA
     Route: 048
  3. FOLIC ACID [Concomitant]
     Indication: PROPHYLAXIS OF NEURAL TUBE DEFECT
     Route: 048

REACTIONS (3)
  - Premature labour [Unknown]
  - Cervical incompetence [Unknown]
  - Exposure during pregnancy [Unknown]
